FAERS Safety Report 14170957 (Version 4)
Quarter: 2018Q1

REPORT INFORMATION
  Report Type: Report from Study
  Country: US (occurrence: US)
  Receive Date: 20171108
  Receipt Date: 20180110
  Transmission Date: 20180508
  Serious: Yes (Hospitalization, Other)
  Sender: FDA-Public Use
  Company Number: US-GILEAD-2017-0303307

PATIENT
  Age: 57 Year
  Sex: Male
  Weight: 80.6 kg

DRUGS (3)
  1. SILDENAFIL CITRATE. [Concomitant]
     Active Substance: SILDENAFIL CITRATE
  2. AMBRISENTAN [Suspect]
     Active Substance: AMBRISENTAN
     Indication: CONNECTIVE TISSUE DISORDER
     Dosage: 10 MG, QD
     Route: 065
     Dates: start: 20171012
  3. AMBRISENTAN [Suspect]
     Active Substance: AMBRISENTAN
     Indication: PULMONARY ARTERIAL HYPERTENSION
     Dosage: 5 MG, QD
     Route: 048
     Dates: start: 20171012

REACTIONS (7)
  - Peripheral swelling [Not Recovered/Not Resolved]
  - Fluid overload [Recovered/Resolved]
  - Fatigue [Unknown]
  - Dyspnoea [Recovered/Resolved]
  - Hypotension [Unknown]
  - Systemic lupus erythematosus [Not Recovered/Not Resolved]
  - Pleural effusion [Recovered/Resolved]

NARRATIVE: CASE EVENT DATE: 20171110
